FAERS Safety Report 8410275-X (Version None)
Quarter: 2012Q2

REPORT INFORMATION
  Report Type: 
  Country: None (occurrence: None)
  Receive Date: 20120605
  Receipt Date: 20120604
  Transmission Date: 20120825
  Serious: Yes (Other)
  Sender: FDA-Public Use
  Company Number: PHEH2006US01233

PATIENT
  Sex: Female

DRUGS (16)
  1. PREDNISONE [Concomitant]
  2. NAPROXEN [Concomitant]
  3. DILAUDID [Concomitant]
  4. LOVENOX [Concomitant]
  5. ROCEPHIN [Concomitant]
  6. ALPRAZOLAM [Concomitant]
  7. INVANZ [Concomitant]
  8. ENOXAPARIN [Concomitant]
  9. CELECOXIB [Concomitant]
  10. TORADOL [Concomitant]
  11. RANIDINE [Concomitant]
  12. ZOFRAN [Concomitant]
  13. CYCLOSPORINE [Concomitant]
  14. ZOMETA [Suspect]
     Route: 042
  15. DIGOXIN [Concomitant]
  16. ASCORBIC ACID [Concomitant]
     Dosage: UNK

REACTIONS (52)
  - ABDOMINAL PAIN [None]
  - CALCULUS URETERIC [None]
  - CYSTITIS [None]
  - SPINAL OSTEOARTHRITIS [None]
  - ACTINIC KERATOSIS [None]
  - GASTRITIS [None]
  - NEPHROLITHIASIS [None]
  - URINARY TRACT INFECTION [None]
  - CYSTOCELE [None]
  - ARTHRITIS [None]
  - CARPAL TUNNEL SYNDROME [None]
  - ACUTE SINUSITIS [None]
  - RHINITIS ALLERGIC [None]
  - ANOGENITAL WARTS [None]
  - HYPOAESTHESIA [None]
  - OROPHARYNGEAL PAIN [None]
  - OSTEOPOROSIS [None]
  - IRRITABLE BOWEL SYNDROME [None]
  - OBSTRUCTIVE UROPATHY [None]
  - GASTRIC ULCER [None]
  - DYSPEPSIA [None]
  - CARDIAC FAILURE CONGESTIVE [None]
  - HYPERTENSION [None]
  - CARDIOMEGALY [None]
  - EYE IRRITATION [None]
  - OSTEONECROSIS OF JAW [None]
  - PYELONEPHRITIS [None]
  - ARRHYTHMIA [None]
  - PAPILLOMA VIRAL INFECTION [None]
  - CARDIOMYOPATHY [None]
  - HAEMORRHOIDS [None]
  - UMBILICAL HERNIA [None]
  - RENAL COLIC [None]
  - DEEP VEIN THROMBOSIS [None]
  - MYOFASCIAL PAIN SYNDROME [None]
  - ANXIETY [None]
  - CAROTID BRUIT [None]
  - DYSPNOEA EXERTIONAL [None]
  - GRANULOMA [None]
  - RESPIRATORY TRACT CONGESTION [None]
  - EAR PAIN [None]
  - FLANK PAIN [None]
  - DYSURIA [None]
  - MIGRAINE [None]
  - OEDEMA PERIPHERAL [None]
  - UPPER RESPIRATORY TRACT INFECTION [None]
  - PNEUMONIA [None]
  - COUGH [None]
  - LUNG CANCER METASTATIC [None]
  - ARTHRALGIA [None]
  - INFECTION [None]
  - GASTROOESOPHAGEAL REFLUX DISEASE [None]
